FAERS Safety Report 15856562 (Version 1)
Quarter: 2019Q1

REPORT INFORMATION
  Report Type: Spontaneous
  Country: DE (occurrence: DE)
  Receive Date: 20190123
  Receipt Date: 20190123
  Transmission Date: 20190417
  Serious: Yes (Other)
  Sender: FDA-Public Use
  Company Number: DE-ROCHE-2250027

PATIENT
  Age: 49 Year
  Sex: Female

DRUGS (4)
  1. OMALIZUMAB. [Suspect]
     Active Substance: OMALIZUMAB
     Indication: TYPE I HYPERSENSITIVITY
     Route: 065
  2. CLEMASTINE [Suspect]
     Active Substance: CLEMASTINE
     Indication: TYPE I HYPERSENSITIVITY
     Route: 065
  3. OLAPARIB. [Suspect]
     Active Substance: OLAPARIB
     Indication: PERITONEAL NEOPLASM
     Route: 065
  4. BILASTINE [Suspect]
     Active Substance: BILASTINE
     Indication: TYPE I HYPERSENSITIVITY
     Route: 065

REACTIONS (4)
  - Angioedema [Unknown]
  - Urticaria [Unknown]
  - Type I hypersensitivity [Unknown]
  - Treatment failure [Unknown]
